FAERS Safety Report 14503634 (Version 1)
Quarter: 2018Q1

REPORT INFORMATION
  Report Type: Spontaneous
  Country: US (occurrence: US)
  Receive Date: 20180208
  Receipt Date: 20180208
  Transmission Date: 20180509
  Serious: No
  Sender: FDA-Public Use
  Company Number: US-JNJFOC-20180107125

PATIENT
  Sex: Female
  Weight: 55 kg

DRUGS (2)
  1. IMBRUVICA [Suspect]
     Active Substance: IBRUTINIB
     Indication: WALDENSTROM^S MACROGLOBULINAEMIA
     Route: 048
     Dates: start: 20170921
  2. LISINOPRIL. [Concomitant]
     Active Substance: LISINOPRIL

REACTIONS (6)
  - Rhinalgia [Unknown]
  - Incontinence [Unknown]
  - Pollakiuria [Unknown]
  - Skin irritation [Unknown]
  - Nasal ulcer [Unknown]
  - Pubic pain [Unknown]
